FAERS Safety Report 24169544 (Version 3)
Quarter: 2025Q1

REPORT INFORMATION
  Report Type: Spontaneous
  Country: IT (occurrence: IT)
  Receive Date: 20240802
  Receipt Date: 20250319
  Transmission Date: 20250409
  Serious: Yes (Hospitalization, Other)
  Sender: AMGEN
  Company Number: IT-UCBSA-2024038051

PATIENT
  Age: 52 Year
  Sex: Female
  Weight: 41 kg

DRUGS (1)
  1. EVENITY [Suspect]
     Active Substance: ROMOSOZUMAB-AQQG
     Indication: Osteoporosis
     Route: 058
     Dates: start: 20240320

REACTIONS (5)
  - Arterial stenosis [Unknown]
  - Emotional distress [Unknown]
  - Troponin I increased [Unknown]
  - Left ventricular dysfunction [Unknown]
  - Stress cardiomyopathy [Recovered/Resolved]

NARRATIVE: CASE EVENT DATE: 20240101
